FAERS Safety Report 10516407 (Version 2)
Quarter: 2015Q1

REPORT INFORMATION
  Report Type: Spontaneous
  Country: DK (occurrence: CA)
  Receive Date: 20141014
  Receipt Date: 20150210
  Transmission Date: 20150720
  Serious: Yes (Other)
  Sender: FDA-Public Use
  Company Number: CA-FRI-1000071392

PATIENT
  Age: 19 Year
  Sex: Female
  Weight: 38 kg

DRUGS (3)
  1. ALYSENA 28 [Suspect]
     Active Substance: ETHINYL ESTRADIOL\LEVONORGESTREL
     Indication: MENORRHAGIA
     Dosage: 100/20 MCG
     Route: 048
  2. ESCITALOPRAM [Suspect]
     Active Substance: ESCITALOPRAM OXALATE
     Indication: DYSTHYMIC DISORDER
     Dosage: 20 MG
     Route: 048
  3. LAMOTRIGINE. [Suspect]
     Active Substance: LAMOTRIGINE
     Indication: EPILEPSY
     Dosage: 350 MG
     Route: 048

REACTIONS (4)
  - Drug interaction [Unknown]
  - Generalised tonic-clonic seizure [Unknown]
  - Product use issue [Unknown]
  - Simple partial seizures [Unknown]

NARRATIVE: CASE EVENT DATE: 20131026
